FAERS Safety Report 17244347 (Version 4)
Quarter: 2021Q2

REPORT INFORMATION
  Report Type: Spontaneous
  Country: US (occurrence: US)
  Receive Date: 20200107
  Receipt Date: 20210520
  Transmission Date: 20210716
  Serious: Yes (Other)
  Sender: FDA-Public Use
  Company Number: US-GILEAD-2019-0444865

PATIENT
  Sex: Male
  Weight: 81.63 kg

DRUGS (8)
  1. VIREAD [Suspect]
     Active Substance: TENOFOVIR DISOPROXIL FUMARATE
     Indication: HIV INFECTION
     Dosage: UNK
     Route: 048
     Dates: start: 2003, end: 201510
  2. PREZCOBIX [Concomitant]
     Active Substance: COBICISTAT\DARUNAVIR ETHANOLATE
  3. ZIAGEN [Concomitant]
     Active Substance: ABACAVIR SULFATE
  4. TRUVADA [Suspect]
     Active Substance: EMTRICITABINE\TENOFOVIR DISOPROXIL FUMARATE
     Indication: HIV INFECTION
     Dosage: UNK
     Route: 048
     Dates: start: 2003, end: 201510
  5. NORVIR [Concomitant]
     Active Substance: RITONAVIR
  6. EMTRIVA [Concomitant]
     Active Substance: EMTRICITABINE
  7. REYATAZ [Concomitant]
     Active Substance: ATAZANAVIR SULFATE
  8. SUSTIVA [Concomitant]
     Active Substance: EFAVIRENZ

REACTIONS (12)
  - Chronic kidney disease [Not Recovered/Not Resolved]
  - Anxiety [Not Recovered/Not Resolved]
  - Acute kidney injury [Unknown]
  - Anhedonia [Not Recovered/Not Resolved]
  - Pain [Not Recovered/Not Resolved]
  - Economic problem [Not Recovered/Not Resolved]
  - Emotional distress [Not Recovered/Not Resolved]
  - Blood creatinine increased [Not Recovered/Not Resolved]
  - Pollakiuria [Not Recovered/Not Resolved]
  - Gait disturbance [Not Recovered/Not Resolved]
  - Fatigue [Not Recovered/Not Resolved]
  - Depression [Not Recovered/Not Resolved]

NARRATIVE: CASE EVENT DATE: 2012
